FAERS Safety Report 5037336-X (Version None)
Quarter: 2006Q2

REPORT INFORMATION
  Report Type: 
  Country: None (occurrence: None)
  Receive Date: 20060602
  Receipt Date: 20050930
  Transmission Date: 20061013
  Serious: Yes (Other)
  Sender: FDA-Public Use
  Company Number: 2005RL000130

PATIENT
  Age: 38 Year
  Sex: Male
  Weight: 63.05 kg

DRUGS (6)
  1. NIZATIDINE [Suspect]
     Indication: DYSPEPSIA
     Dosage: 1 DG;HS;PO
     Route: 048
     Dates: start: 19990513, end: 20050520
  2. LOPERAMIDE [Concomitant]
  3. SIMVASTATIN [Concomitant]
  4. OMEPRAZOLE [Concomitant]
  5. LANTUS [Concomitant]
  6. HUMALOG PEN [Concomitant]

REACTIONS (1)
  - GYNAECOMASTIA [None]
